FAERS Safety Report 5844827-8 (Version None)
Quarter: 2008Q3

REPORT INFORMATION
  Report Type: 
  Country: None (occurrence: None)
  Receive Date: 20080814
  Receipt Date: 20080811
  Transmission Date: 20090109
  Serious: Yes (Hospitalization)
  Sender: FDA-Public Use
  Company Number: FR-BRISTOL-MYERS SQUIBB COMPANY-14168132

PATIENT
  Age: 60 Year
  Sex: Female

DRUGS (7)
  1. CYCLOPHOSPHAMIDE [Suspect]
     Indication: T-CELL LYMPHOMA
     Dosage: RECEIVED FOUR COURSES FROM 06-NOV-2007 TO 24-DEC-2007.
     Route: 042
     Dates: start: 20071224, end: 20071224
  2. DOXORUBICIN HCL [Suspect]
     Indication: T-CELL LYMPHOMA
     Dosage: ON DAY 1.  THERAPY DATES WERE 06-NOV-2007 TO 24-DEC-2007.
     Route: 042
     Dates: start: 20071224, end: 20071224
  3. BLEOMYCIN SULFATE [Suspect]
     Indication: T-CELL LYMPHOMA
     Dosage: 10 MG ON DAY 1 AND DAY 5.   RECEIVED FOUR COURSES FROM 06-NOV-2007 TO 28-DEC-2007.
     Route: 042
     Dates: start: 20071228, end: 20071228
  4. GRANOCYTE [Suspect]
     Indication: T-CELL LYMPHOMA
     Dosage: ALSO 33.6 MIU/L.FIRST COURSE ON 12-NOV-2007 TO 16-NOV-2007,LAST COURSE ON 29-DEC-2007 TO 02-JAN-2008
     Route: 058
     Dates: start: 20080102, end: 20080102
  5. PREDNISONE TAB [Suspect]
     Indication: T-CELL LYMPHOMA
     Dosage: INTRAVENOUSLY OR ORALLY FROM DAY 1 TO DAY 5.  THERAPY DATES:  06-NOV-2007 TO 28-DEC-2007
     Route: 048
     Dates: start: 20071228, end: 20071228
  6. VELCADE [Suspect]
     Indication: T-CELL LYMPHOMA
     Dosage: 06-NOV-2007 TO 28-DEC-2007, DAY 1 AND DAY 5
     Route: 042
     Dates: start: 20071228, end: 20071228
  7. VINDESINE [Suspect]
     Indication: T-CELL LYMPHOMA
     Dosage: ON DAY 1 AND DAY 5.  THE THERAPY DATES WERE 06-NOV-2007 TO 28-DEC-2007
     Dates: start: 20071228, end: 20071228

REACTIONS (1)
  - EMBOLISM [None]
